FAERS Safety Report 21821450 (Version 1)
Quarter: 2023Q1

REPORT INFORMATION
  Report Type: Report from Study
  Country: US (occurrence: US)
  Receive Date: 20230105
  Receipt Date: 20230105
  Transmission Date: 20230418
  Serious: No
  Sender: FDA-Public Use
  Company Number: US-ABBVIE-4228230

PATIENT
  Sex: Male

DRUGS (1)
  1. HUMIRA [Suspect]
     Active Substance: ADALIMUMAB
     Indication: Rheumatoid arthritis
     Route: 058

REACTIONS (9)
  - Lower respiratory tract congestion [Unknown]
  - Sinus congestion [Unknown]
  - Headache [Unknown]
  - Pain in extremity [Unknown]
  - Nephrolithiasis [Unknown]
  - Pain [Unknown]
  - Arthralgia [Unknown]
  - Kidney infection [Unknown]
  - Influenza [Unknown]
